FAERS Safety Report 18928006 (Version 1)
Quarter: 2021Q1

REPORT INFORMATION
  Report Type: Spontaneous
  Country: US (occurrence: US)
  Receive Date: 20210223
  Receipt Date: 20210223
  Transmission Date: 20210420
  Serious: No
  Sender: FDA-Public Use
  Company Number: None

PATIENT
  Age: 70 Year
  Sex: Male

DRUGS (1)
  1. BENZTROPINE (BENZTROPINE MESYLATE 0.5MG TAB) [Suspect]
     Active Substance: BENZTROPINE MESYLATE
     Indication: PARKINSONISM
     Route: 048
     Dates: start: 19990409, end: 20200825

REACTIONS (4)
  - Urinary retention [None]
  - Gait disturbance [None]
  - Confusional state [None]
  - Dysuria [None]

NARRATIVE: CASE EVENT DATE: 20200822
